FAERS Safety Report 6943379-9 (Version None)
Quarter: 2010Q3

REPORT INFORMATION
  Report Type: 
  Country: None (occurrence: None)
  Receive Date: 20100826
  Receipt Date: 20100720
  Transmission Date: 20110219
  Serious: No
  Sender: FDA-Public Use
  Company Number: US-PFIZER INC-2010094449

PATIENT
  Age: 60 Year
  Sex: Male

DRUGS (1)
  1. ARGATROBAN [Suspect]
     Indication: HEPARIN-INDUCED THROMBOCYTOPENIA
     Dosage: 25 MCG/KG/MIN
     Route: 042
     Dates: start: 20100712

REACTIONS (1)
  - INTERNATIONAL NORMALISED RATIO INCREASED [None]
